FAERS Safety Report 8391963-0 (Version None)
Quarter: 2012Q2

REPORT INFORMATION
  Report Type: 
  Country: None (occurrence: None)
  Receive Date: 20120529
  Receipt Date: 20120521
  Transmission Date: 20120825
  Serious: Yes (Other)
  Sender: FDA-Public Use
  Company Number: CN-GLAXOSMITHKLINE-B0804126A

PATIENT
  Age: 44 Year
  Sex: Male

DRUGS (1)
  1. CEFUROXIME SODIUM [Suspect]
     Indication: ERYSIPELAS
     Dosage: 3G TWICE PER DAY
     Route: 042

REACTIONS (7)
  - TACHYPNOEA [None]
  - CHILLS [None]
  - INFLUENZA [None]
  - DRY MOUTH [None]
  - BACK PAIN [None]
  - ABDOMINAL PAIN [None]
  - PALLOR [None]
